FAERS Safety Report 8172791-8 (Version None)
Quarter: 2012Q1

REPORT INFORMATION
  Report Type: 
  Country: None (occurrence: None)
  Receive Date: 20120223
  Receipt Date: 20120208
  Transmission Date: 20120608
  Serious: Yes (Other)
  Sender: FDA-Public Use
  Company Number: 2012SGN00058

PATIENT
  Age: 47 Year
  Sex: Male
  Weight: 90 kg

DRUGS (2)
  1. DEXAMETHASONE SODIUM PHOSPHATE [Concomitant]
  2. ADCETRIS [Suspect]
     Indication: HODGKIN'S DISEASE

REACTIONS (1)
  - PNEUMONIA [None]
